FAERS Safety Report 17817372 (Version 1)
Quarter: 2020Q2

REPORT INFORMATION
  Report Type: Spontaneous
  Country: FR (occurrence: FR)
  Receive Date: 20200522
  Receipt Date: 20200522
  Transmission Date: 20200714
  Serious: Yes (Life-Threatening)
  Sender: FDA-Public Use
  Company Number: FR-MYLANLABS-2020M1051122

PATIENT
  Age: 81 Year
  Sex: Female

DRUGS (3)
  1. MORPHINE RENAUDIN [Interacting]
     Active Substance: MORPHINE
     Indication: FRACTURE PAIN
     Dosage: 3 MILLIGRAM
     Route: 042
     Dates: start: 20200411, end: 20200411
  2. KETAMINE PANPHARMA [Concomitant]
     Active Substance: KETAMINE
     Dosage: 35 MILLIGRAM
  3. MIDAZOLAM MYLAN [Suspect]
     Active Substance: MIDAZOLAM HYDROCHLORIDE
     Indication: FRACTURE PAIN
     Dosage: UNK
     Route: 042
     Dates: start: 20200411, end: 20200411

REACTIONS (4)
  - Product preparation error [Recovered/Resolved]
  - Respiratory arrest [Recovered/Resolved]
  - Drug interaction [Recovered/Resolved]
  - Wrong product administered [Recovered/Resolved]

NARRATIVE: CASE EVENT DATE: 20200411
